FAERS Safety Report 15345245 (Version 2)
Quarter: 2018Q4

REPORT INFORMATION
  Report Type: Spontaneous
  Country: JP (occurrence: JP)
  Receive Date: 20180903
  Receipt Date: 20181001
  Transmission Date: 20190204
  Serious: Yes (Disabling)
  Sender: FDA-Public Use
  Company Number: PHJP2017JP016635

PATIENT
  Sex: Male

DRUGS (1)
  1. TASIGNA [Suspect]
     Active Substance: NILOTINIB
     Indication: CHRONIC MYELOID LEUKAEMIA
     Dosage: 600 MG, QD
     Route: 048
     Dates: start: 201505, end: 201806

REACTIONS (5)
  - Hypercholesterolaemia [Not Recovered/Not Resolved]
  - Blood triglycerides increased [Unknown]
  - Glycosylated haemoglobin increased [Not Recovered/Not Resolved]
  - Carotid artery disease [Unknown]
  - Low density lipoprotein increased [Unknown]

NARRATIVE: CASE EVENT DATE: 201806
